FAERS Safety Report 12154698 (Version 1)
Quarter: 2016Q1

REPORT INFORMATION
  Report Type: Spontaneous
  Country: US (occurrence: None)
  Receive Date: 20160304
  Receipt Date: 20160304
  Transmission Date: 20160526
  Serious: Yes (Death, Life-Threatening)
  Sender: FDA-Public Use
  Company Number: None

PATIENT
  Age: 76 Year
  Sex: Female
  Weight: 43.5 kg

DRUGS (1)
  1. SODIUM POLYSTYRENE [Suspect]
     Active Substance: SODIUM POLYSTYRENE SULFONATE
     Indication: PRODUCT USED FOR UNKNOWN INDICATION
     Route: 048
     Dates: start: 20160216

REACTIONS (2)
  - Abdominal sepsis [None]
  - Gastrointestinal necrosis [None]

NARRATIVE: CASE EVENT DATE: 20160221
